FAERS Safety Report 25859273 (Version 1)
Quarter: 2025Q3

REPORT INFORMATION
  Report Type: Spontaneous
  Country: US (occurrence: US)
  Receive Date: 20250929
  Receipt Date: 20250929
  Transmission Date: 20251021
  Serious: No
  Sender: VERTEX
  Company Number: US-VERTEX PHARMACEUTICALS-2025-015710

PATIENT
  Age: 66 Year
  Sex: Female

DRUGS (1)
  1. JOURNAVX [Suspect]
     Active Substance: SUZETRIGINE
     Indication: Pain
     Dosage: 50 MG, BID
     Route: 048
     Dates: start: 20250910, end: 20250922

REACTIONS (1)
  - Urticaria [Not Recovered/Not Resolved]

NARRATIVE: CASE EVENT DATE: 20250920
